FAERS Safety Report 9649317 (Version 1)
Quarter: 2013Q4

REPORT INFORMATION
  Report Type: Spontaneous
  Country: BR (occurrence: BR)
  Receive Date: 20131028
  Receipt Date: 20131028
  Transmission Date: 20140711
  Serious: Yes (Hospitalization, Other)
  Sender: FDA-Public Use
  Company Number: PHHY2013BR120167

PATIENT
  Age: 74 Year
  Sex: Female

DRUGS (1)
  1. EXELON PATCH [Suspect]
     Indication: DEMENTIA ALZHEIMER^S TYPE
     Dosage: 9.5 MG, QD (1 PATCH EVERY 24 HOURS AT 8 O^ CLOCK)
     Route: 062
     Dates: start: 2012

REACTIONS (15)
  - Hip fracture [Not Recovered/Not Resolved]
  - Upper limb fracture [Not Recovered/Not Resolved]
  - Thrombosis [Recovered/Resolved]
  - Ischaemic cerebral infarction [Unknown]
  - Dysstasia [Not Recovered/Not Resolved]
  - Cough [Recovered/Resolved]
  - Sinusitis [Recovered/Resolved]
  - Convulsion [Recovered/Resolved]
  - Lung infection [Recovered/Resolved]
  - Pain in extremity [Unknown]
  - Hypotension [Recovered/Resolved]
  - Eating disorder [Not Recovered/Not Resolved]
  - Headache [Recovered/Resolved]
  - Weight decreased [Recovered/Resolved]
  - Arrhythmia [Unknown]
